FAERS Safety Report 14074913 (Version 1)
Quarter: 2017Q4

REPORT INFORMATION
  Report Type: Spontaneous
  Country: US (occurrence: US)
  Receive Date: 20171011
  Receipt Date: 20171011
  Transmission Date: 20180321
  Serious: No
  Sender: FDA-Public Use
  Company Number: US-TARO-2017TAR00742

PATIENT
  Age: 73 Year
  Sex: Male
  Weight: 70.3 kg

DRUGS (3)
  1. VITAMIN D3 [Concomitant]
     Active Substance: CHOLECALCIFEROL
  2. SOLARAY MAGNESIUM CITRATE [Concomitant]
  3. METRONIDAZOLE GEL USP, 1% [Suspect]
     Active Substance: METRONIDAZOLE
     Indication: ROSACEA
     Dosage: SMALL AMOUNT, 1X/DAY TO FACE
     Route: 061
     Dates: start: 20170828, end: 20170830

REACTIONS (3)
  - Reaction to excipient [Recovered/Resolved]
  - Rosacea [Recovered/Resolved]
  - Product substitution issue [Recovered/Resolved]

NARRATIVE: CASE EVENT DATE: 20170828
